FAERS Safety Report 15287514 (Version 1)
Quarter: 2018Q4

REPORT INFORMATION
  Report Type: Spontaneous
  Country: DK (occurrence: DK)
  Receive Date: 20180817
  Receipt Date: 20180817
  Transmission Date: 20190204
  Serious: Yes (Hospitalization)
  Sender: FDA-Public Use
  Company Number: DK-TEVA-2018-DK-941672

PATIENT
  Age: 71 Year
  Sex: Female

DRUGS (8)
  1. QUETIAPIN ^ACTAVIS^ [Suspect]
     Active Substance: QUETIAPINE FUMARATE
     Indication: SCHIZOPHRENIA
     Dosage: STYRKE: 100 MG.
     Route: 048
     Dates: start: 20180615
  2. BETOLVEX [Concomitant]
     Active Substance: CYANOCOBALAMIN
     Indication: VITAMIN B12 DEFICIENCY
     Dosage: STYRKE: 1 MG.
     Route: 048
     Dates: start: 20180402, end: 20180618
  3. FERRO DURETTER [Concomitant]
     Indication: MINERAL SUPPLEMENTATION
     Dosage: STYRKE: 100 MG.
     Route: 048
     Dates: start: 20171129
  4. LANTUS SOLOSTAR [Concomitant]
     Active Substance: INSULIN GLARGINE
     Indication: DIABETES MELLITUS
     Dosage: STYRKE: 100 E/ML. DOSIS: 46 IE.
     Route: 058
     Dates: start: 20160824
  5. RIVOTRIL [Suspect]
     Active Substance: CLONAZEPAM
     Indication: ANXIETY
     Dosage: STYRKE: 0,5 MG.
     Route: 048
     Dates: start: 20111106
  6. SERTRALINE [Suspect]
     Active Substance: SERTRALINE HYDROCHLORIDE
     Indication: DEPRESSION
     Dosage: STYRKE: 50 MG.
     Route: 048
     Dates: start: 20111106, end: 20180618
  7. MELATONIN [Concomitant]
     Active Substance: MELATONIN
     Indication: INSOMNIA
     Dosage: STYRKE: 3 MG.
     Route: 048
     Dates: start: 20140812, end: 20180618
  8. UNIKALK MED D-VITAMIN [Concomitant]
     Indication: VITAMIN SUPPLEMENTATION
     Dosage: STYRKE:19 MIKROGRAM + 400 MG.
     Route: 048
     Dates: start: 20111106, end: 20180618

REACTIONS (3)
  - Disability [Recovering/Resolving]
  - Fall [Recovering/Resolving]
  - Overdose [Recovered/Resolved]

NARRATIVE: CASE EVENT DATE: 2018
